FAERS Safety Report 6287616-5 (Version None)
Quarter: 2009Q3

REPORT INFORMATION
  Report Type: 
  Country: None (occurrence: None)
  Receive Date: 20090727
  Receipt Date: 20090727
  Transmission Date: 20100115
  Serious: Yes (Death, Hospitalization, Disabling)
  Sender: FDA-Public Use
  Company Number: None

PATIENT
  Sex: Female
  Weight: 112 kg

DRUGS (7)
  1. LEVAQUIN [Suspect]
     Indication: IMPAIRED HEALING
     Dosage: 500MG 2 PILLS
  2. LEVAQUIN [Suspect]
     Indication: INFLAMMATION
     Dosage: 500MG 2 PILLS
  3. LEVAQUIN [Suspect]
     Indication: LIMB INJURY
     Dosage: 500MG 2 PILLS
  4. INSULIN [Concomitant]
  5. COOZAR [Concomitant]
  6. LIPITOR [Concomitant]
  7. LEVOXYL [Concomitant]

REACTIONS (5)
  - IMPAIRED HEALING [None]
  - IMPAIRED WORK ABILITY [None]
  - JOINT SWELLING [None]
  - OEDEMA PERIPHERAL [None]
  - PAIN IN EXTREMITY [None]
